FAERS Safety Report 8454145-X (Version None)
Quarter: 2012Q2

REPORT INFORMATION
  Report Type: 
  Country: None (occurrence: None)
  Receive Date: 20120620
  Receipt Date: 20120619
  Transmission Date: 20120825
  Serious: Yes (Death, Hospitalization)
  Sender: FDA-Public Use
  Company Number: US-BRISTOL-MYERS SQUIBB COMPANY-16521171

PATIENT
  Age: 68 Year
  Sex: Male

DRUGS (39)
  1. TENORMIN [Concomitant]
  2. ALFUZOSIN HCL [Concomitant]
     Route: 048
  3. PRILOSEC [Concomitant]
  4. ZOFRAN [Concomitant]
     Dosage: PRN
  5. LEVOTHYROXINE [Concomitant]
     Dosage: MRNG
     Route: 048
  6. XANAX [Concomitant]
     Dosage: 1DF= 0.5-1.0 MG QHS
  7. FLECAINIDE ACETATE [Concomitant]
     Dosage: 100MG QHS;150 MG MORNING AND NOON
     Route: 048
     Dates: start: 20120301
  8. CHERATUSSIN AC [Concomitant]
  9. ATENOLOL [Concomitant]
     Indication: PALPITATIONS
     Dosage: MRNG,IF NECESSARY TWO TIMES
     Route: 048
  10. ALPRAZOLAM [Concomitant]
     Dosage: AT BED TIME,1-2 TABS
     Route: 048
  11. PRAVASTATIN [Concomitant]
     Dosage: EVENING
     Route: 048
  12. PROCHLORPERAZINE [Concomitant]
     Dosage: Q6H,APPROX 3 TIMES/WEEK
     Route: 048
  13. ZOLPIDEM [Concomitant]
     Dosage: 5-10 MG AT BEDTIME
     Route: 048
  14. BACTRIM [Concomitant]
     Route: 048
     Dates: start: 20120411
  15. AMBIEN [Concomitant]
     Dosage: 1DF= 5-15MG Q HS PRN
  16. PRAVACHOL [Concomitant]
     Dosage: QHS
  17. TESSALON [Concomitant]
  18. ONDANSETRON [Concomitant]
     Dosage: TID,APPROX 3 TIMES/WK
     Route: 048
  19. ZOLPIDEM TARTRATE [Concomitant]
     Dosage: 1 DF : 5-10MG, AT BED TIME
     Route: 048
  20. ENOXAPARIN [Concomitant]
     Route: 058
  21. HYOMAX-SR [Concomitant]
     Dosage: MRNG,HYOSCYAMINE XR
     Route: 048
  22. SYNTHROID [Concomitant]
  23. COMPAZINE [Concomitant]
     Dosage: PRN
  24. CISPLATIN [Suspect]
     Indication: NON-SMALL CELL LUNG CANCER
     Dosage: 4 CYCLE
     Dates: start: 20111219
  25. AVELOX [Concomitant]
     Dosage: 400MG X 10 DAYS
     Dates: start: 20120409
  26. OMEPRAZOLE [Concomitant]
     Route: 048
  27. MDX-1106 [Suspect]
     Indication: NON-SMALL CELL LUNG CANCER
     Dosage: 4 CYCLE
     Dates: start: 20111219
  28. GEMCITABINE [Suspect]
     Indication: NON-SMALL CELL LUNG CANCER
     Dosage: 4 CYCLE
     Dates: start: 20111219
  29. IMODIUM [Concomitant]
     Dosage: 1DF = 2TABS
  30. UROXATRAL [Concomitant]
     Dosage: 1DF= 1 TAB
  31. LOVENOX [Concomitant]
     Route: 058
  32. TESTOSTERONE [Concomitant]
     Dosage: GEL 2.5 GRAM MORNING, APPLIES ONE PUMP (1.25G) TO EACH ARM
     Route: 061
  33. EZETIMIBE [Concomitant]
     Route: 048
  34. GUAIFENESIN + CODEINE [Concomitant]
     Dosage: DAILY
     Route: 048
  35. SACCHAROMYCES BOULARDII [Concomitant]
     Dosage: MRNG
     Route: 048
  36. ZETIA [Concomitant]
     Dosage: 1DF= 1 TAB QHS
  37. GAVISCON [Concomitant]
     Dosage: 1DF= 1-2 TBSP AC + HS PRN
  38. LOPERAMIDE [Concomitant]
     Route: 048
  39. MOXIFLOXACIN [Concomitant]
     Dosage: RECEIVED 4 DOSES
     Route: 048
     Dates: start: 20120409

REACTIONS (3)
  - PNEUMONIA [None]
  - PNEUMONITIS [None]
  - NEOPLASM MALIGNANT [None]
